FAERS Safety Report 4826023-6 (Version None)
Quarter: 2005Q4

REPORT INFORMATION
  Report Type: 
  Country: None (occurrence: None)
  Receive Date: 20051111
  Receipt Date: 20051005
  Transmission Date: 20060501
  Serious: Yes (Hospitalization, Other)
  Sender: FDA-Public Use
  Company Number: 2005PK01828

PATIENT
  Age: 16186 Day
  Sex: Female
  Weight: 53 kg

DRUGS (17)
  1. SEROQUEL [Suspect]
     Indication: HALLUCINATION
     Route: 048
     Dates: start: 20050812
  2. SEROQUEL [Suspect]
     Indication: DELUSIONAL DISORDER, UNSPECIFIED TYPE
     Route: 048
     Dates: start: 20050812
  3. SEROQUEL [Suspect]
     Indication: SUICIDAL IDEATION
     Route: 048
     Dates: start: 20050812
  4. SEROQUEL [Suspect]
     Dosage: SLOWLY DECREASED UNTIL WITHDRAWAL
     Route: 048
     Dates: start: 20050930, end: 20051020
  5. SEROQUEL [Suspect]
     Dosage: SLOWLY DECREASED UNTIL WITHDRAWAL
     Route: 048
     Dates: start: 20050930, end: 20051020
  6. SEROQUEL [Suspect]
     Dosage: SLOWLY DECREASED UNTIL WITHDRAWAL
     Route: 048
     Dates: start: 20050930, end: 20051020
  7. ERGENYL [Suspect]
     Indication: HALLUCINATION
     Route: 048
     Dates: start: 20050812
  8. ERGENYL [Suspect]
     Indication: DELUSIONAL DISORDER, UNSPECIFIED TYPE
     Route: 048
     Dates: start: 20050812
  9. ERGENYL [Suspect]
     Indication: EPILEPSY
     Route: 048
     Dates: start: 20050812
  10. ERGENYL [Suspect]
     Route: 048
     Dates: start: 20050930
  11. ERGENYL [Suspect]
     Route: 048
     Dates: start: 20050930
  12. ERGENYL [Suspect]
     Route: 048
     Dates: start: 20050930
  13. ERGENYL [Suspect]
     Route: 048
     Dates: start: 20051013
  14. ERGENYL [Suspect]
     Route: 048
     Dates: start: 20051013
  15. ERGENYL [Suspect]
     Route: 048
     Dates: start: 20051013
  16. LAMICTAL [Suspect]
     Indication: EPILEPSY
     Route: 048
     Dates: start: 20050812
  17. LAMICTAL [Suspect]
     Dosage: SLOWLY WITHDRAWN FROM 400 MG PER DAY
     Route: 048
     Dates: start: 20050930, end: 20051016

REACTIONS (6)
  - ALANINE AMINOTRANSFERASE INCREASED [None]
  - ASPARTATE AMINOTRANSFERASE INCREASED [None]
  - EXTRAPYRAMIDAL DISORDER [None]
  - GAMMA-GLUTAMYLTRANSFERASE INCREASED [None]
  - LEUKOPENIA [None]
  - TRANSAMINASES INCREASED [None]
